FAERS Safety Report 8397706-9 (Version None)
Quarter: 2012Q2

REPORT INFORMATION
  Report Type: 
  Country: None (occurrence: None)
  Receive Date: 20120531
  Receipt Date: 20120524
  Transmission Date: 20120825
  Serious: Yes (Life-Threatening, Hospitalization)
  Sender: FDA-Public Use
  Company Number: US-BAYER-2012-014693

PATIENT
  Age: 36 Year
  Sex: Female
  Weight: 49.887 kg

DRUGS (7)
  1. DIFFERIN [Concomitant]
     Dosage: 0.1 UNK, UNK
  2. YASMIN [Suspect]
     Dosage: UNK
     Dates: start: 20070401, end: 20080601
  3. YASMIN [Suspect]
     Indication: CONTRACEPTION
     Dosage: UNK
     Dates: start: 20041001, end: 20060401
  4. WELLBUTRIN XL [Concomitant]
     Indication: DEPRESSION
     Dosage: 300 MG, UNK
     Dates: start: 19990101
  5. DROSPIRENONE AND ETHINYL ESTRADIOL [Suspect]
     Indication: CONTRACEPTION
     Dosage: UNK
     Dates: start: 20080701, end: 20090201
  6. VALTREX [Concomitant]
     Dosage: UNK
     Dates: start: 20090801
  7. VALTREX [Concomitant]
     Indication: HERPES ZOSTER
     Dosage: UNK
     Dates: start: 20090601

REACTIONS (8)
  - MYOCARDIAL INFARCTION [None]
  - ANXIETY [None]
  - CORONARY ARTERY DISSECTION [None]
  - ANGINA PECTORIS [None]
  - VENTRICULAR TACHYCARDIA [None]
  - FEAR [None]
  - SYSTOLIC DYSFUNCTION [None]
  - ANHEDONIA [None]
